FAERS Safety Report 12092287 (Version 1)
Quarter: 2016Q1

REPORT INFORMATION
  Report Type: Spontaneous
  Country: US (occurrence: None)
  Receive Date: 20160218
  Receipt Date: 20160218
  Transmission Date: 20160526
  Serious: No
  Sender: FDA-Public Use
  Company Number: None

PATIENT
  Age: 35 Year
  Sex: Female
  Weight: 86.18 kg

DRUGS (3)
  1. MIRENA [Concomitant]
     Active Substance: LEVONORGESTREL
  2. TRANSDERM SCOP [Suspect]
     Active Substance: SCOPOLAMINE
     Indication: MOTION SICKNESS
     Dosage: 1 PATCH EVERY 3 DAYS 1 PATCH PER 3 DAYS APPLIED AS MEDICATED PATCH TO SKIN
     Route: 061
     Dates: start: 20160212, end: 20160214
  3. VITAMIN B12 [Concomitant]
     Active Substance: CYANOCOBALAMIN

REACTIONS (9)
  - Palpitations [None]
  - Vision blurred [None]
  - Mydriasis [None]
  - Joint swelling [None]
  - Dehydration [None]
  - Feeling abnormal [None]
  - Swelling face [None]
  - Thirst [None]
  - Hallucination, visual [None]

NARRATIVE: CASE EVENT DATE: 20160214
